FAERS Safety Report 6024740-6 (Version None)
Quarter: 2008Q4

REPORT INFORMATION
  Report Type: 
  Country: None (occurrence: None)
  Receive Date: 20081231
  Receipt Date: 20081223
  Transmission Date: 20090506
  Serious: Yes (Other)
  Sender: FDA-Public Use
  Company Number: US-JNJFOC-20081105842

PATIENT
  Sex: Female
  Weight: 67.59 kg

DRUGS (2)
  1. REMICADE [Suspect]
     Route: 042
  2. REMICADE [Suspect]
     Indication: RHEUMATOID ARTHRITIS
     Dosage: INFUSION 1-2 ON ONSPECIFIED DATES
     Route: 042

REACTIONS (7)
  - DYSPNOEA [None]
  - EXTRASYSTOLES [None]
  - FEELING HOT [None]
  - FLUSHING [None]
  - HYPOTENSION [None]
  - INFUSION RELATED REACTION [None]
  - MENTAL STATUS CHANGES [None]
